FAERS Safety Report 7124360-6 (Version None)
Quarter: 2010Q4

REPORT INFORMATION
  Report Type: 
  Country: None (occurrence: None)
  Receive Date: 20101126
  Receipt Date: 20101123
  Transmission Date: 20110411
  Serious: Yes (Hospitalization, Other)
  Sender: FDA-Public Use
  Company Number: CHPA2010US14979

PATIENT
  Age: 59 Year
  Sex: Female
  Weight: 83.9 kg

DRUGS (13)
  1. VOLTAREN [Suspect]
     Indication: ARTHRITIS
     Dosage: UNK, BID
     Route: 061
     Dates: start: 20090101
  2. DARVOCET-N 100 [Concomitant]
     Indication: PAIN
     Route: 048
  3. ALLOPURINOL [Concomitant]
     Indication: GOUT
  4. DIURETICS [Concomitant]
  5. INSULIN [Concomitant]
  6. THYROID PREPARATIONS [Concomitant]
  7. COREG [Concomitant]
  8. LISINOPRIL [Concomitant]
  9. ISOSORBIDE DINITRATE [Concomitant]
  10. PLAVIX [Concomitant]
  11. VITAMIN D [Concomitant]
  12. METHOTREXATE [Concomitant]
  13. FOLIC ACID [Concomitant]

REACTIONS (8)
  - BLOOD POTASSIUM INCREASED [None]
  - BRONCHITIS [None]
  - CARDIAC ENZYMES INCREASED [None]
  - DRUG ADMINISTERED AT INAPPROPRIATE SITE [None]
  - DYSPNOEA [None]
  - MYOCARDIAL INFARCTION [None]
  - THERAPEUTIC RESPONSE UNEXPECTED [None]
  - WRONG TECHNIQUE IN DRUG USAGE PROCESS [None]
